FAERS Safety Report 4462969-9 (Version None)
Quarter: 2004Q3

REPORT INFORMATION
  Report Type: 
  Country: None (occurrence: None)
  Receive Date: 20040927
  Receipt Date: 20040909
  Transmission Date: 20050211
  Serious: Yes (Hospitalization)
  Sender: FDA-Public Use
  Company Number: 6010512

PATIENT
  Age: 74 Year
  Sex: Male

DRUGS (4)
  1. LEVOTHYROXINE SODIUM [Suspect]
     Indication: HYPOTHYROIDISM
     Dosage: 150 MCG (150 MCG, 1 IN 1 D)
     Route: 048
  2. FUCIDINE CAP [Suspect]
     Indication: BONE INFECTION
     Dosage: 4 DOSAGE FORMS (1 DOSAGE FORMS, 4 IN 1D), ORAL
     Route: 048
     Dates: start: 20040616
  3. AMOXICILLIN TRIHYDRATE [Suspect]
     Indication: BONE INFECTION
     Dosage: 6 GM (6 GM, 1 IN 1 D), ORAL
     Route: 048
     Dates: start: 20040616
  4. RIFADIN [Suspect]
     Indication: BONE INFECTION
     Dosage: 900 MG (300 MG, 3 IN 1 D); ORAL
     Route: 048
     Dates: start: 20040616

REACTIONS (7)
  - ARTHRITIS INFECTIVE [None]
  - ASTHENIA [None]
  - DYSPNOEA [None]
  - MALAISE [None]
  - PHOSPHENES [None]
  - VENTRICULAR EXTRASYSTOLES [None]
  - VERTIGO [None]
